FAERS Safety Report 24033294 (Version 3)
Quarter: 2024Q3

REPORT INFORMATION
  Report Type: Report from Study
  Country: CA (occurrence: CA)
  Receive Date: 20240701
  Receipt Date: 20240730
  Transmission Date: 20241017
  Serious: Yes (Other)
  Sender: ABBVIE
  Company Number: CA-ABBVIE-5819470

PATIENT
  Sex: Male

DRUGS (1)
  1. SKYRIZI [Suspect]
     Active Substance: RISANKIZUMAB-RZAA
     Indication: Crohn^s disease
     Route: 058
     Dates: start: 20230526

REACTIONS (11)
  - Blindness unilateral [Unknown]
  - Diarrhoea [Not Recovered/Not Resolved]
  - Eye infection [Unknown]
  - Crohn^s disease [Unknown]
  - Haemorrhoids [Unknown]
  - Haematemesis [Recovered/Resolved]
  - Faeces discoloured [Unknown]
  - Illness [Unknown]
  - Memory impairment [Unknown]
  - Defaecation urgency [Not Recovered/Not Resolved]
  - Anal incontinence [Not Recovered/Not Resolved]

NARRATIVE: CASE EVENT DATE: 20240404
